FAERS Safety Report 4528934-8 (Version None)
Quarter: 2004Q4

REPORT INFORMATION
  Report Type: 
  Country: None (occurrence: None)
  Receive Date: 20041214
  Receipt Date: 20041208
  Transmission Date: 20050328
  Serious: Yes (Hospitalization)
  Sender: FDA-Public Use
  Company Number: 200413354GDS

PATIENT
  Age: 73 Year
  Sex: Male

DRUGS (3)
  1. ASPIRIN [Suspect]
     Indication: ACUTE MYOCARDIAL INFARCTION
     Dosage: 100 MG, QD, ORAL
     Route: 048
     Dates: start: 19990519, end: 20041004
  2. LOSAZID [Concomitant]
  3. PROSCAR [Concomitant]

REACTIONS (1)
  - GINGIVAL BLEEDING [None]
